FAERS Safety Report 14543461 (Version 2)
Quarter: 2018Q4

REPORT INFORMATION
  Report Type: Spontaneous
  Country: FR (occurrence: FR)
  Receive Date: 20180216
  Receipt Date: 20181128
  Transmission Date: 20190204
  Serious: Yes (Hospitalization, Other)
  Sender: FDA-Public Use
  Company Number: FR-SA-2018SA030691

PATIENT
  Age: 85 Year
  Sex: Female
  Weight: 65 kg

DRUGS (7)
  1. MINOCYCLINE HYDROCHLORIDE. [Suspect]
     Active Substance: MINOCYCLINE HYDROCHLORIDE
     Indication: DEVICE RELATED SEPSIS
     Dosage: 200 MG, QD
     Route: 048
     Dates: start: 20171204, end: 20171221
  2. VANCOMYCIN [Suspect]
     Active Substance: VANCOMYCIN
     Indication: DEVICE RELATED SEPSIS
  3. RIFAMPICIN [Suspect]
     Active Substance: RIFAMPIN
     Indication: DEVICE RELATED SEPSIS
     Dosage: 6 DF, QD
     Route: 048
     Dates: start: 20171204, end: 20171228
  4. RIFADINE [Suspect]
     Active Substance: RIFAMPIN
     Indication: DEVICE RELATED SEPSIS
     Dosage: 2 DF, QD
     Route: 042
     Dates: start: 20171123, end: 20171204
  5. VANCOMYCIN [Suspect]
     Active Substance: VANCOMYCIN
     Indication: POST PROCEDURAL URINE LEAK
     Dosage: UNK UNK,UNK
     Route: 042
     Dates: start: 20171123, end: 20171204
  6. LIPANOR [Concomitant]
     Active Substance: CIPROFIBRATE
     Indication: HYPERTRIGLYCERIDAEMIA
     Dosage: 2 DF, QD
     Route: 048
     Dates: start: 20171130
  7. PARACETAMOL [Concomitant]
     Active Substance: ACETAMINOPHEN
     Indication: ANALGESIC THERAPY
     Dosage: 3 G, QD
     Route: 048
     Dates: start: 20171228

REACTIONS (7)
  - Decreased appetite [Recovering/Resolving]
  - Vomiting [Recovering/Resolving]
  - Nausea [Recovering/Resolving]
  - Renal impairment [Recovering/Resolving]
  - Cholestasis [Recovering/Resolving]
  - Tonic clonic movements [Recovering/Resolving]
  - Jaundice [Recovering/Resolving]

NARRATIVE: CASE EVENT DATE: 20171204
